FAERS Safety Report 15426503 (Version 1)
Quarter: 2018Q3

REPORT INFORMATION
  Report Type: Spontaneous
  Country: US (occurrence: US)
  Receive Date: 20180925
  Receipt Date: 20180925
  Transmission Date: 20181010
  Serious: No
  Sender: FDA-Public Use
  Company Number: US-INDIVIOR LIMITED-INDV-105458-2017

PATIENT
  Age: 64 Year
  Sex: Male

DRUGS (3)
  1. SUBOXONE [Suspect]
     Active Substance: BUPRENORPHINE HYDROCHLORIDE\NALOXONE HYDROCHLORIDE
     Dosage: 4MG, CUTTING
     Route: 060
     Dates: start: 201706
  2. SUBOXONE [Suspect]
     Active Substance: BUPRENORPHINE HYDROCHLORIDE\NALOXONE HYDROCHLORIDE
     Indication: DRUG DEPENDENCE
     Dosage: UNK
     Route: 065
     Dates: start: 2016, end: 2016
  3. PAXIL [Concomitant]
     Active Substance: PAROXETINE HYDROCHLORIDE
     Indication: PRODUCT USED FOR UNKNOWN INDICATION
     Dosage: UNK
     Route: 065
     Dates: start: 2016

REACTIONS (11)
  - Product preparation error [Not Recovered/Not Resolved]
  - Therapeutic response shortened [Unknown]
  - Drug dependence [Not Recovered/Not Resolved]
  - Product use issue [Not Recovered/Not Resolved]
  - Nervousness [Not Recovered/Not Resolved]
  - Depression [Not Recovered/Not Resolved]
  - Anxiety [Not Recovered/Not Resolved]
  - Intentional underdose [Recovered/Resolved]
  - Drug withdrawal syndrome [Unknown]
  - Insomnia [Not Recovered/Not Resolved]
  - Feeling jittery [Not Recovered/Not Resolved]

NARRATIVE: CASE EVENT DATE: 2016
